FAERS Safety Report 5534085-6 (Version None)
Quarter: 2007Q4

REPORT INFORMATION
  Report Type: 
  Country: None (occurrence: None)
  Receive Date: 20071129
  Receipt Date: 20071129
  Transmission Date: 20080405
  Serious: No
  Sender: FDA-Public Use
  Company Number: None

PATIENT
  Age: 54 Year
  Sex: Female
  Weight: 61.2356 kg

DRUGS (4)
  1. KENALOG [Suspect]
     Indication: METATARSALGIA
     Dosage: .25 CC KENALOG TWO INJECTIONS SQ; 2CC 2% LIDOCAINE PLAIN
     Route: 058
     Dates: start: 20070130, end: 20070130
  2. KENALOG [Suspect]
     Indication: NEUROMA
     Dosage: .25 CC KENALOG TWO INJECTIONS SQ; 2CC 2% LIDOCAINE PLAIN
     Route: 058
     Dates: start: 20070130, end: 20070130
  3. KENALOG [Suspect]
     Indication: PLANTAR FASCIITIS
     Dosage: .25 CC KENALOG TWO INJECTIONS SQ; 2CC 2% LIDOCAINE PLAIN
     Route: 058
     Dates: start: 20070130, end: 20070130
  4. LIDOCAINE [Suspect]
     Dosage: 2CC 2%

REACTIONS (2)
  - ATROPHY [None]
  - IMPAIRED HEALING [None]
